FAERS Safety Report 8914213 (Version 2)
Quarter: 2013Q1

REPORT INFORMATION
  Report Type: Spontaneous
  Country: IT (occurrence: IT)
  Receive Date: 20121116
  Receipt Date: 20130104
  Transmission Date: 20140127
  Serious: Yes (Life-Threatening)
  Sender: FDA-Public Use
  Company Number: IT-BAXTER-2012BAX023803

PATIENT
  Age: 46 Year
  Sex: Male

DRUGS (4)
  1. HOLOXAN [Suspect]
     Indication: NON-HODGKIN^S LYMPHOMA
     Route: 042
     Dates: start: 20121022, end: 20121025
  2. NAVELBINE [Suspect]
     Indication: NON-HODGKIN^S LYMPHOMA
     Route: 042
     Dates: start: 20121022, end: 20121022
  3. GEMCITABINE [Suspect]
     Indication: NON-HODGKIN^S LYMPHOMA
     Route: 042
     Dates: start: 20121022, end: 20121025
  4. ALOXI [Suspect]
     Indication: NON-HODGKIN^S LYMPHOMA
     Route: 042
     Dates: start: 20121022, end: 20121025

REACTIONS (3)
  - Hyperpyrexia [Unknown]
  - Neutropenia [Unknown]
  - Stevens-Johnson syndrome [Unknown]
